FAERS Safety Report 5555877-3 (Version None)
Quarter: 2007Q4

REPORT INFORMATION
  Report Type: 
  Country: None (occurrence: None)
  Receive Date: 20071213
  Receipt Date: 20071127
  Transmission Date: 20080405
  Serious: No
  Sender: FDA-Public Use
  Company Number: US-BOEHRINGER INGELHEIM PHARMACEUTICALS, INC.-2007-BP-25129BP

PATIENT
  Age: 57 Year
  Sex: Female
  Weight: 142 kg

DRUGS (7)
  1. MIRAPEX [Suspect]
     Indication: RESTLESS LEGS SYNDROME
     Dates: end: 20071101
  2. ATROVENT [Concomitant]
     Dosage: BID
     Route: 055
  3. AGMANEV [Concomitant]
     Dosage: DAILY
     Dates: start: 20071029
  4. SYNTHROID [Concomitant]
     Dosage: DAILY
  5. RUNOGEMIDE [Concomitant]
     Dosage: BID
  6. K-DUR 10 [Concomitant]
     Dosage: 20 MEQ BID
  7. FOLIC ACID [Concomitant]
     Dosage: DAILY

REACTIONS (2)
  - DYSPNOEA [None]
  - GENERALISED OEDEMA [None]
